FAERS Safety Report 6788586-3 (Version None)
Quarter: 2010Q2

REPORT INFORMATION
  Report Type: 
  Country: None (occurrence: None)
  Receive Date: 20100623
  Receipt Date: 20080604
  Transmission Date: 20101027
  Serious: No
  Sender: FDA-Public Use
  Company Number: US-PFIZER INC-2008024730

PATIENT
  Sex: Female
  Weight: 75 kg

DRUGS (8)
  1. XALATAN [Suspect]
     Indication: GLAUCOMA
     Route: 047
     Dates: start: 20050406, end: 20080317
  2. AMLODIPINE [Concomitant]
  3. SYNTHROID [Concomitant]
  4. VITAMIN D [Concomitant]
  5. NORVASC [Concomitant]
  6. VYTORIN [Concomitant]
  7. VITAMINS [Concomitant]
  8. ADVIL LIQUI-GELS [Concomitant]

REACTIONS (4)
  - EYE IRRITATION [None]
  - EYE PRURITUS [None]
  - HYPERSENSITIVITY [None]
  - OCULAR HYPERAEMIA [None]
